FAERS Safety Report 21407386 (Version 1)
Quarter: 2022Q4

REPORT INFORMATION
  Report Type: Other
  Country: TR (occurrence: None)
  Receive Date: 20221004
  Receipt Date: 20221004
  Transmission Date: 20230112
  Serious: Yes (Other)
  Sender: FDA-Public Use
  Company Number: TR-Invatech-000264

PATIENT
  Age: 3 Year
  Sex: Male

DRUGS (1)
  1. PYRIDOSTIGMINE [Suspect]
     Active Substance: PYRIDOSTIGMINE
     Indication: Product used for unknown indication

REACTIONS (5)
  - Respiratory failure [Recovering/Resolving]
  - Muscular weakness [Recovering/Resolving]
  - Hypotonia [Recovering/Resolving]
  - Atrophy [Recovering/Resolving]
  - Condition aggravated [Recovering/Resolving]
